FAERS Safety Report 5943579-0 (Version None)
Quarter: 2008Q4

REPORT INFORMATION
  Report Type: 
  Country: None (occurrence: None)
  Receive Date: 20081106
  Receipt Date: 20080429
  Transmission Date: 20090506
  Serious: No
  Sender: FDA-Public Use
  Company Number: A0726151A

PATIENT
  Sex: Female

DRUGS (3)
  1. AMOXICILLIN [Suspect]
     Route: 065
  2. ACTOS [Suspect]
     Indication: DRUG USE FOR UNKNOWN INDICATION
     Route: 048
  3. ZITHROMAX [Suspect]
     Route: 048

REACTIONS (1)
  - DIARRHOEA [None]
